FAERS Safety Report 9377871 (Version 1)
Quarter: 2013Q3

REPORT INFORMATION
  Report Type: Spontaneous
  Country: US (occurrence: US)
  Receive Date: 20130701
  Receipt Date: 20130701
  Transmission Date: 20140515
  Serious: Yes (Hospitalization)
  Sender: FDA-Public Use
  Company Number: US-BAYER-2013-080047

PATIENT
  Age: 40 Year
  Sex: Female

DRUGS (6)
  1. YAZ [Suspect]
  2. YASMIN [Suspect]
  3. FENTANYL [Concomitant]
  4. DILAUDID [Concomitant]
  5. PHENERGAN [Concomitant]
  6. KEFLEX [Concomitant]

REACTIONS (3)
  - Subclavian vein thrombosis [None]
  - Cholelithiasis [None]
  - Axillary vein thrombosis [Recovered/Resolved]
